FAERS Safety Report 8967631 (Version 1)
Quarter: 2012Q4

REPORT INFORMATION
  Report Type: Spontaneous
  Country: US (occurrence: None)
  Receive Date: 20121204
  Receipt Date: 20121204
  Transmission Date: 20130627
  Serious: Yes (Death, Hospitalization)
  Sender: FDA-Public Use
  Company Number: 2012-15926

PATIENT
  Age: 87 Year
  Sex: Male

DRUGS (8)
  1. SERTRALINE HYDROCHLORIDE [Suspect]
     Route: 048
  2. OXCARBAZEPINE (OXCARBAZEPINE) TABLET, 300MG [Suspect]
  3. ASPIRIN (ACETYLSALICYLIC ACID) [Concomitant]
  4. ATENOLOL (ATENOLOL) [Concomitant]
  5. IPRATROPIUM BROMIDE AND ALBUTEROL SULFATE (IPRATROPIUM BROMIDE, SALBUTAMOL SULFATE) [Concomitant]
  6. FUROSEMIDE (FUROSEMIDE) [Concomitant]
  7. GABAPENTIN (GABAPENTIN) [Concomitant]
  8. GLIPIZIDE (GLIPIZIDE) [Concomitant]

REACTIONS (4)
  - Serotonin syndrome [None]
  - Drug interaction [None]
  - Septic shock [None]
  - Brain stem syndrome [None]
